FAERS Safety Report 7270502-1 (Version None)
Quarter: 2011Q1

REPORT INFORMATION
  Report Type: 
  Country: None (occurrence: None)
  Receive Date: 20110202
  Receipt Date: 20110124
  Transmission Date: 20110831
  Serious: Yes (Hospitalization, Other)
  Sender: FDA-Public Use
  Company Number: US-ELI_LILLY_AND_COMPANY-US201003000467

PATIENT
  Age: 71 Year
  Sex: Female

DRUGS (10)
  1. LANOXIN [Concomitant]
  2. FUROSEMIDE [Concomitant]
  3. HUMALOG [Suspect]
     Dosage: UNK, AS NEEDED
     Dates: start: 20040101
  4. LANTUS [Concomitant]
  5. HUMALOG [Suspect]
     Indication: DIABETES MELLITUS
     Dosage: UNK, AS NEEDED
     Dates: start: 20040101
  6. GLYBURIDE [Concomitant]
  7. PREDNISONE [Concomitant]
     Indication: ASTHMA
  8. ENALAPRIL MALEATE [Concomitant]
  9. VASOTEC [Concomitant]
  10. ASPIRIN [Concomitant]

REACTIONS (20)
  - WEIGHT INCREASED [None]
  - SKIN IRRITATION [None]
  - THYROID DISORDER [None]
  - MUSCLE SPASMS [None]
  - ASTHENIA [None]
  - INTERVERTEBRAL DISC PROTRUSION [None]
  - WHEEZING [None]
  - DYSPNOEA [None]
  - DRUG DOSE OMISSION [None]
  - CELLULITIS [None]
  - BLISTER [None]
  - OEDEMA PERIPHERAL [None]
  - JOINT SWELLING [None]
  - BLOOD GLUCOSE INCREASED [None]
  - BACK PAIN [None]
  - DRUG INEFFECTIVE [None]
  - WOUND SECRETION [None]
  - ABDOMINAL DISTENSION [None]
  - INJURY [None]
  - ABDOMINAL PAIN UPPER [None]
